FAERS Safety Report 5536864-8 (Version None)
Quarter: 2007Q4

REPORT INFORMATION
  Report Type: 
  Country: None (occurrence: None)
  Receive Date: 20071206
  Receipt Date: 20061108
  Transmission Date: 20080405
  Serious: Yes (Hospitalization)
  Sender: FDA-Public Use
  Company Number: US-AMGEN-KDL198366

PATIENT
  Sex: Female
  Weight: 90.8 kg

DRUGS (19)
  1. ENBREL [Suspect]
     Indication: RHEUMATOID ARTHRITIS
     Route: 058
     Dates: start: 20060515
  2. METHOTREXATE [Concomitant]
     Route: 048
     Dates: start: 20060301
  3. ACIPHEX [Concomitant]
  4. ASTELIN [Concomitant]
  5. SINGULAIR [Concomitant]
  6. AVINZA [Concomitant]
  7. TENORMIN [Concomitant]
  8. METFORMIN HCL [Concomitant]
  9. INSULIN [Concomitant]
  10. ELAVIL [Concomitant]
  11. AMBIEN [Concomitant]
  12. ZOCOR [Concomitant]
  13. FLONASE [Concomitant]
  14. FLOVENT [Concomitant]
  15. ATROVENT [Concomitant]
  16. EFFEXOR [Concomitant]
  17. OXYCODONE HCL [Concomitant]
  18. LYRICA [Concomitant]
  19. CALCIUM WITH VITAMIN D [Concomitant]

REACTIONS (5)
  - CONDITION AGGRAVATED [None]
  - INJECTION SITE REACTION [None]
  - NAIL INFECTION [None]
  - PNEUMONIA [None]
  - RHEUMATOID ARTHRITIS [None]
